FAERS Safety Report 11333538 (Version 1)
Quarter: 2015Q3

REPORT INFORMATION
  Report Type: Spontaneous
  Country: US (occurrence: US)
  Receive Date: 20150803
  Receipt Date: 20150803
  Transmission Date: 20151125
  Serious: No
  Sender: FDA-Public Use
  Company Number: US-ELI_LILLY_AND_COMPANY-US200708006992

PATIENT
  Age: 39 Year
  Sex: Male

DRUGS (5)
  1. ZYPREXA [Suspect]
     Active Substance: OLANZAPINE
     Indication: DEPRESSION
  2. RISPERIDONE. [Concomitant]
     Active Substance: RISPERIDONE
  3. REMERON [Concomitant]
     Active Substance: MIRTAZAPINE
  4. BENADRYL [Concomitant]
     Active Substance: DIPHENHYDRAMINE HYDROCHLORIDE
  5. LIPITOR [Concomitant]
     Active Substance: ATORVASTATIN CALCIUM
     Dosage: 10 MG, DAILY (1/D)
     Dates: start: 20060706

REACTIONS (5)
  - Blood glucose increased [Unknown]
  - Visual acuity reduced [Unknown]
  - Osteoarthritis [Unknown]
  - Penis disorder [Unknown]
  - Diabetes mellitus [Not Recovered/Not Resolved]

NARRATIVE: CASE EVENT DATE: 20040206
